FAERS Safety Report 17362073 (Version 6)
Quarter: 2021Q3

REPORT INFORMATION
  Report Type: Other
  Country: CA (occurrence: CA)
  Receive Date: 20200203
  Receipt Date: 20210903
  Transmission Date: 20211014
  Serious: Yes (Hospitalization, Other)
  Sender: FDA-Public Use
  Company Number: CA-ROCHE-2539494

PATIENT
  Age: 65 Year
  Sex: Female

DRUGS (23)
  1. XOLAIR [Suspect]
     Active Substance: OMALIZUMAB
     Route: 058
     Dates: start: 2019
  2. XOLAIR [Suspect]
     Active Substance: OMALIZUMAB
     Route: 058
     Dates: start: 20190912
  3. NABILONE [Concomitant]
     Active Substance: NABILONE
     Indication: PAIN
     Dosage: 1 DF, QD
     Route: 048
     Dates: start: 201809
  4. CIMZIA [Suspect]
     Active Substance: CERTOLIZUMAB PEGOL
     Indication: RHEUMATOID ARTHRITIS
     Route: 065
     Dates: end: 20191203
  5. BENADRYL [Concomitant]
     Active Substance: DIPHENHYDRAMINE HYDROCHLORIDE
     Indication: URTICARIA
     Dosage: 1 DF, PRN
     Route: 048
  6. TOPIRAMATE. [Concomitant]
     Active Substance: TOPIRAMATE
     Indication: PAIN
     Dosage: 1 DF, QD
     Route: 048
  7. XOLAIR [Suspect]
     Active Substance: OMALIZUMAB
     Route: 058
     Dates: start: 20191105
  8. SYNTHROID [Concomitant]
     Active Substance: LEVOTHYROXINE SODIUM
     Indication: THYROID DISORDER
     Dosage: 1 DF, QD
     Route: 048
     Dates: start: 2009
  9. XOLAIR [Suspect]
     Active Substance: OMALIZUMAB
     Indication: CHRONIC SPONTANEOUS URTICARIA
     Route: 058
     Dates: start: 20190523
  10. XOLAIR [Suspect]
     Active Substance: OMALIZUMAB
     Route: 058
     Dates: start: 20200122
  11. CETIRIZINE [Concomitant]
     Active Substance: CETIRIZINE HYDROCHLORIDE
     Indication: URTICARIA
     Dosage: 1 DF, BID
     Route: 048
  12. XOLAIR [Suspect]
     Active Substance: OMALIZUMAB
     Route: 058
     Dates: start: 20190718
  13. XOLAIR [Suspect]
     Active Substance: OMALIZUMAB
     Route: 058
  14. BILASTINE [Concomitant]
     Active Substance: BILASTINE
     Indication: URTICARIA
     Dosage: 1 DF, QID
     Route: 048
     Dates: start: 20190326
  15. XOLAIR [Suspect]
     Active Substance: OMALIZUMAB
     Route: 058
     Dates: start: 20200415
  16. REACTINE (CANADA) [Concomitant]
     Active Substance: CETIRIZINE HYDROCHLORIDE
     Indication: URTICARIA
     Dosage: 1 DF, BID
     Route: 048
  17. XOLAIR [Suspect]
     Active Substance: OMALIZUMAB
     Route: 058
     Dates: start: 20191210
  18. CIMZIA [Suspect]
     Active Substance: CERTOLIZUMAB PEGOL
     Route: 065
     Dates: start: 20200214
  19. XELJANZ [Suspect]
     Active Substance: TOFACITINIB CITRATE
     Indication: PRODUCT USED FOR UNKNOWN INDICATION
     Route: 065
  20. ATARAX [Concomitant]
     Active Substance: HYDROXYZINE HYDROCHLORIDE
     Indication: URTICARIA
     Dosage: 1 DF, QD
     Route: 048
     Dates: start: 2005
  21. RABEPRAZOLE [Concomitant]
     Active Substance: RABEPRAZOLE
     Indication: ABDOMINAL PAIN UPPER
     Dosage: 1 DF, QD
     Route: 048
  22. CYCLOBENZAPRINE. [Concomitant]
     Active Substance: CYCLOBENZAPRINE
     Indication: PAIN
     Dosage: 1 DF, QD
     Route: 048
  23. MELATONINE [Concomitant]
     Active Substance: MELATONIN
     Indication: SLEEP DISORDER
     Dosage: 1 DF, QD
     Route: 048

REACTIONS (30)
  - Insomnia [Not Recovered/Not Resolved]
  - Nasopharyngitis [Unknown]
  - Skin injury [Unknown]
  - Dry mouth [Unknown]
  - Heart rate increased [Unknown]
  - Scratch [Unknown]
  - Vaccination site pain [Unknown]
  - Haemorrhoids [Unknown]
  - Dry eye [Unknown]
  - Blood pressure systolic increased [Not Recovered/Not Resolved]
  - Incorrect dose administered [Unknown]
  - Lower respiratory tract infection [Recovering/Resolving]
  - Rheumatoid arthritis [Unknown]
  - Urticaria [Not Recovered/Not Resolved]
  - Rectal haemorrhage [Unknown]
  - Limb injury [Unknown]
  - Respiratory tract congestion [Unknown]
  - Rash [Unknown]
  - Nasal congestion [Unknown]
  - Sjogren^s syndrome [Unknown]
  - Ulcer [Unknown]
  - Herpes zoster [Unknown]
  - Illness [Unknown]
  - Sinusitis [Unknown]
  - Pruritus [Unknown]
  - Anaemia [Unknown]
  - Infection [Unknown]
  - Drug ineffective [Unknown]
  - Productive cough [Unknown]
  - Gastrooesophageal reflux disease [Unknown]

NARRATIVE: CASE EVENT DATE: 2019
